FAERS Safety Report 6998335-1 (Version None)
Quarter: 2010Q3

REPORT INFORMATION
  Report Type: 
  Country: None (occurrence: None)
  Receive Date: 20100920
  Receipt Date: 20100706
  Transmission Date: 20110219
  Serious: Yes (Hospitalization)
  Sender: FDA-Public Use
  Company Number: US-ASTRAZENECA-2010SE23030

PATIENT
  Age: 46 Year
  Sex: Male

DRUGS (12)
  1. SEROQUEL [Suspect]
     Indication: BIPOLAR DISORDER
     Route: 048
  2. SEROQUEL [Suspect]
     Route: 048
     Dates: start: 20040101, end: 20070101
  3. SEROQUEL [Suspect]
     Route: 048
     Dates: start: 20070101, end: 20100401
  4. SEROQUEL [Suspect]
     Route: 048
     Dates: start: 20100401
  5. PROPRANOLOL [Concomitant]
  6. LITHIUM CARBONATE [Concomitant]
  7. CELEXA [Concomitant]
  8. LEVOTHYROXINE [Concomitant]
  9. PREVACID [Concomitant]
  10. ASPIRIN [Concomitant]
  11. VITAMINS [Concomitant]
  12. PHILLIPS COLON HEALTH [Concomitant]

REACTIONS (12)
  - ANXIETY [None]
  - CHILLS [None]
  - COLD SWEAT [None]
  - DIZZINESS [None]
  - DRUG DEPENDENCE [None]
  - DRUG DOSE OMISSION [None]
  - INSOMNIA [None]
  - LOGORRHOEA [None]
  - MIGRAINE [None]
  - PYREXIA [None]
  - RENAL DISORDER [None]
  - THYROID DISORDER [None]
